FAERS Safety Report 16277395 (Version 1)
Quarter: 2019Q2

REPORT INFORMATION
  Report Type: Spontaneous
  Country: US (occurrence: US)
  Receive Date: 20190506
  Receipt Date: 20190506
  Transmission Date: 20190711
  Serious: Yes (Other)
  Sender: FDA-Public Use
  Company Number: US-PFIZER INC-2019191396

PATIENT
  Age: 83 Year
  Sex: Female
  Weight: 58.96 kg

DRUGS (1)
  1. DILANTIN [Suspect]
     Active Substance: PHENYTOIN
     Indication: SEIZURE
     Dosage: 220 MG, DAILY (2 30MG PILLS AT NOON AND 1 100MG PILL AND 2 30MG PILL AT BED TIME)

REACTIONS (1)
  - Colon cancer [Unknown]
